FAERS Safety Report 22660307 (Version 1)
Quarter: 2023Q2

REPORT INFORMATION
  Report Type: Spontaneous
  Country: IT (occurrence: IT)
  Receive Date: 20230630
  Receipt Date: 20230630
  Transmission Date: 20230722
  Serious: No
  Sender: FDA-Public Use
  Company Number: IT-JAZZ PHARMACEUTICALS-2023-IT-012681

PATIENT

DRUGS (1)
  1. CANNABIDIOL [Suspect]
     Active Substance: CANNABIDIOL
     Indication: Epileptic encephalopathy
     Dosage: UNK

REACTIONS (1)
  - Off label use [Unknown]
